FAERS Safety Report 14382836 (Version 6)
Quarter: 2019Q2

REPORT INFORMATION
  Report Type: Spontaneous
  Country: US (occurrence: US)
  Receive Date: 20180113
  Receipt Date: 20190424
  Transmission Date: 20190711
  Serious: Yes (Disabling, Other)
  Sender: FDA-Public Use
  Company Number: US-ASTRAZENECA-2018SE03970

PATIENT
  Age: 60 Year
  Sex: Female
  Weight: 112 kg

DRUGS (37)
  1. CELEXA [Concomitant]
     Active Substance: CITALOPRAM HYDROBROMIDE
  2. FLONASE [Concomitant]
     Active Substance: FLUTICASONE PROPIONATE
  3. KAPIDEX [Suspect]
     Active Substance: DEXLANSOPRAZOLE
     Indication: GASTROOESOPHAGEAL REFLUX DISEASE
     Route: 065
     Dates: start: 201001, end: 201002
  4. NASONEX [Concomitant]
     Active Substance: MOMETASONE FUROATE
  5. LIDODERM [Concomitant]
     Active Substance: LIDOCAINE
  6. LIDOCAINE. [Concomitant]
     Active Substance: LIDOCAINE
     Indication: BACK PAIN
  7. ROLAIDS [Concomitant]
     Active Substance: CALCIUM CARBONATE\MAGNESIUM HYDROXIDE
     Dosage: WHEN NEEDED
     Route: 065
     Dates: start: 2000
  8. SANCTURA [Concomitant]
     Active Substance: TROSPIUM CHLORIDE
  9. MULTIVITAMINS [Concomitant]
     Active Substance: VITAMINS
     Indication: ILL-DEFINED DISORDER
  10. OMEGA 3 [Concomitant]
     Active Substance: OMEGA-3 FATTY ACIDS
     Indication: DRY EYE
  11. LISINOPRIL/ HYDROCHLOROTHIAZIDE [Concomitant]
     Active Substance: HYDROCHLOROTHIAZIDE\LISINOPRIL
  12. NEXIUM [Suspect]
     Active Substance: ESOMEPRAZOLE MAGNESIUM
     Indication: GASTROOESOPHAGEAL REFLUX DISEASE
     Route: 048
     Dates: start: 2000, end: 2010
  13. MUCINEX [Concomitant]
     Active Substance: GUAIFENESIN
     Indication: SINUS OPERATION
     Route: 065
     Dates: start: 201712, end: 2018
  14. MINOCYCLINE [Concomitant]
     Active Substance: MINOCYCLINE\MINOCYCLINE HYDROCHLORIDE
     Indication: FURUNCLE
  15. ALLOPURINOL. [Concomitant]
     Active Substance: ALLOPURINOL
     Indication: BLOOD URIC ACID
  16. DHEA [Concomitant]
     Active Substance: PRASTERONE
     Route: 048
     Dates: start: 1998, end: 2018
  17. TRAZODONE [Concomitant]
     Active Substance: TRAZODONE HYDROCHLORIDE
  18. CYCLOBENZAPRINE. [Concomitant]
     Active Substance: CYCLOBENZAPRINE
  19. ZEGERID [Suspect]
     Active Substance: OMEPRAZOLE\SODIUM BICARBONATE
     Indication: GASTROOESOPHAGEAL REFLUX DISEASE
     Route: 042
     Dates: start: 201001, end: 201002
  20. ASTELIN SPRAY [Concomitant]
  21. ROSUVASTATIN CALCIUM. [Concomitant]
     Active Substance: ROSUVASTATIN CALCIUM
     Indication: BLOOD CHOLESTEROL
  22. VITAMIN B3 [Concomitant]
     Active Substance: NIACIN
     Indication: ROUTINE HEALTH MAINTENANCE
     Dates: start: 2017, end: 2018
  23. NORCO [Concomitant]
     Active Substance: ACETAMINOPHEN\HYDROCODONE BITARTRATE
  24. ZYRTEC [Concomitant]
     Active Substance: CETIRIZINE HYDROCHLORIDE
  25. LEVOXYL [Concomitant]
     Active Substance: LEVOTHYROXINE SODIUM
  26. BROMFENEX [Concomitant]
     Active Substance: BROMPHENIRAMINE MALEATE\PSEUDOEPHEDRINE HYDROCHLORIDE
  27. LODRANE D [Concomitant]
     Active Substance: BROMPHENIRAMINE MALEATE\PSEUDOEPHEDRINE HYDROCHLORIDE
  28. TUMS [Concomitant]
     Active Substance: CALCIUM CARBONATE
     Dosage: WHEN NEEDED
     Route: 065
     Dates: start: 2000
  29. LIPITOR [Concomitant]
     Active Substance: ATORVASTATIN CALCIUM
  30. ALTACE [Concomitant]
     Active Substance: RAMIPRIL
  31. CRESTOR [Concomitant]
     Active Substance: ROSUVASTATIN CALCIUM
  32. LISINOPRIL-HCTZ [Concomitant]
     Active Substance: HYDROCHLOROTHIAZIDE\LISINOPRIL
  33. HYDROCHLOROTHIAZIDE. [Concomitant]
     Active Substance: HYDROCHLOROTHIAZIDE
  34. MUCINEX [Concomitant]
     Active Substance: GUAIFENESIN
     Indication: SINUS OPERATION
     Route: 065
     Dates: start: 200002, end: 2018
  35. ASPIRIN. [Concomitant]
     Active Substance: ASPIRIN
     Route: 065
  36. NEXIUM [Suspect]
     Active Substance: ESOMEPRAZOLE MAGNESIUM
     Indication: GASTROOESOPHAGEAL REFLUX DISEASE
     Route: 048
     Dates: start: 200404, end: 200804
  37. IPRATROPIUM SPRAY [Concomitant]

REACTIONS (7)
  - Renal injury [Unknown]
  - Renal impairment [Unknown]
  - Renal failure [Unknown]
  - End stage renal disease [Unknown]
  - Acute kidney injury [Unknown]
  - Chronic kidney disease [Not Recovered/Not Resolved]
  - Hyperparathyroidism secondary [Unknown]

NARRATIVE: CASE EVENT DATE: 2007
